FAERS Safety Report 11760560 (Version 1)
Quarter: 2015Q4

REPORT INFORMATION
  Report Type: Report from Study
  Country: US (occurrence: US)
  Receive Date: 20151120
  Receipt Date: 20151120
  Transmission Date: 20160304
  Serious: Yes (Other)
  Sender: FDA-Public Use
  Company Number: US-AMGEN-USASL2015120334

PATIENT
  Age: 59 Year
  Sex: Female

DRUGS (2)
  1. ENBREL [Suspect]
     Active Substance: ETANERCEPT
     Indication: RHEUMATOID ARTHRITIS
     Dosage: 50 MG, QWK
     Route: 065
     Dates: start: 201310
  2. ENBREL [Suspect]
     Active Substance: ETANERCEPT
     Indication: POLYARTHRITIS

REACTIONS (5)
  - Inflammation [Unknown]
  - Inappropriate schedule of drug administration [Unknown]
  - Condition aggravated [Unknown]
  - Blood cholesterol abnormal [Unknown]
  - Carotid artery occlusion [Unknown]
